FAERS Safety Report 7352830-4 (Version None)
Quarter: 2011Q1

REPORT INFORMATION
  Report Type: 
  Country: None (occurrence: None)
  Receive Date: 20110304
  Receipt Date: 20100719
  Transmission Date: 20110831
  Serious: Yes (Other)
  Sender: FDA-Public Use
  Company Number: CA-20100010

PATIENT
  Age: 60 Year
  Sex: Male

DRUGS (3)
  1. LIPIODOL (ETHIODIZED OIL) [Suspect]
     Indication: THERAPEUTIC EMBOLISATION
     Dosage: 5-10ML IN TOTAL
  2. DOXORUBICIN HCL [Suspect]
     Indication: THERAPEUTIC EMBOLISATION
     Dosage: 50-75 MG./M2'
  3. OMNIPAQUE 70 [Suspect]
     Indication: THERAPEUTIC EMBOLISATION
     Dosage: 10 ML (10 ML, 1 IN 1 TOTAL)

REACTIONS (2)
  - CHOLECYSTITIS ACUTE [None]
  - OFF LABEL USE [None]
